FAERS Safety Report 5419356-6 (Version None)
Quarter: 2007Q3

REPORT INFORMATION
  Report Type: 
  Country: None (occurrence: None)
  Receive Date: 20070816
  Receipt Date: 20070816
  Transmission Date: 20080115
  Serious: No
  Sender: FDA-Public Use
  Company Number: None

PATIENT
  Age: 40 Year
  Sex: Female

DRUGS (6)
  1. PALIPERIDONE -INVEGA- 6 MG [Suspect]
     Indication: BIPOLAR DISORDER
     Dosage: 6 MG DAILY PO
     Route: 048
     Dates: start: 20070628, end: 20070704
  2. SEROQUEL [Concomitant]
  3. LAMICTAL [Concomitant]
  4. EFFEXOR [Concomitant]
  5. AMBIEN [Concomitant]
  6. ATIVAN [Concomitant]

REACTIONS (5)
  - AFFECT LABILITY [None]
  - CRYING [None]
  - GASTROOESOPHAGEAL REFLUX DISEASE [None]
  - NAUSEA [None]
  - PANIC ATTACK [None]
